FAERS Safety Report 8828079 (Version 1)
Quarter: 2012Q4

REPORT INFORMATION
  Report Type: 
  Country: CN (occurrence: CN)
  Receive Date: 20121005
  Receipt Date: 20121005
  Transmission Date: 20130627
  Serious: Yes (Other)
  Sender: FDA-Public Use
  Company Number: CN-JNJFOC-20120912608

PATIENT
  Age: 58 Year
  Sex: Female

DRUGS (5)
  1. TYLENOL COLD [Suspect]
     Indication: PYREXIA
     Route: 048
     Dates: start: 20100815, end: 20100815
  2. TYLENOL COLD [Suspect]
     Indication: PYREXIA
     Route: 048
     Dates: start: 20100816, end: 20100816
  3. TYLENOL COLD [Suspect]
     Indication: NASOPHARYNGITIS
     Route: 048
     Dates: start: 20100815, end: 20100815
  4. TYLENOL COLD [Suspect]
     Indication: NASOPHARYNGITIS
     Route: 048
     Dates: start: 20100816, end: 20100816
  5. ANTI HYPERTENSIVE NOS [Concomitant]
     Indication: HYPERTENSION
     Route: 048

REACTIONS (3)
  - Hypersensitivity [Recovering/Resolving]
  - Rash [None]
  - Oedema peripheral [None]
